FAERS Safety Report 16526788 (Version 1)
Quarter: 2019Q3

REPORT INFORMATION
  Report Type: Spontaneous
  Country: US (occurrence: US)
  Receive Date: 20190703
  Receipt Date: 20190703
  Transmission Date: 20191004
  Serious: Yes (Hospitalization, Other)
  Sender: FDA-Public Use
  Company Number: US-ASTRAZENECA-2019SE93200

PATIENT

DRUGS (20)
  1. CITRACAL + D [Concomitant]
     Active Substance: CALCIUM CITRATE\VITAMIN D
  2. VITAMIN D3 [Concomitant]
     Active Substance: CHOLECALCIFEROL
  3. FISH OIL [Concomitant]
     Active Substance: FISH OIL
  4. TENORMIN [Suspect]
     Active Substance: ATENOLOL
     Route: 065
  5. IBRANCE [Suspect]
     Active Substance: PALBOCICLIB
     Route: 048
  6. CALCIUM PHOSPHATE [Concomitant]
     Active Substance: CALCIUM PHOSPHATE
  7. SINEMET [Concomitant]
     Active Substance: CARBIDOPA\LEVODOPA
  8. NITROSTAT [Concomitant]
     Active Substance: NITROGLYCERIN
  9. LIPITOR [Concomitant]
     Active Substance: ATORVASTATIN CALCIUM
  10. CENTRUM SILVER [Concomitant]
     Active Substance: MINERALS\VITAMINS
  11. FASLODEX [Suspect]
     Active Substance: FULVESTRANT
     Route: 030
  12. HUMULIN NOS [Concomitant]
     Active Substance: INSULIN HUMAN
  13. PRESERVISION [Concomitant]
     Active Substance: MINERALS\VITAMINS
  14. ZESTRIL [Suspect]
     Active Substance: LISINOPRIL
     Dosage: LISINOPRIL-ZESTRIL
     Route: 048
  15. HYDRODIURIL [Suspect]
     Active Substance: HYDROCHLOROTHIAZIDE
     Route: 065
  16. LETROZOLE. [Concomitant]
     Active Substance: LETROZOLE
  17. VITAMIN D [Concomitant]
     Active Substance: VITAMIN D NOS
  18. ZESTRIL [Suspect]
     Active Substance: LISINOPRIL
     Dosage: LISINOPRIL DIHYDRATE-PRINIVIL
     Route: 048
  19. ASPIRIN (E.C.) [Concomitant]
     Active Substance: ASPIRIN
  20. COMPAZINE [Concomitant]
     Active Substance: PROCHLORPERAZINE MALEATE

REACTIONS (5)
  - Small intestinal obstruction [Recovered/Resolved]
  - Carbohydrate antigen 27.29 increased [Recovered/Resolved]
  - Haemoglobin decreased [Recovered/Resolved]
  - White blood cell count decreased [Recovered/Resolved]
  - Malignant neoplasm progression [Recovered/Resolved]

NARRATIVE: CASE EVENT DATE: 20181225
